FAERS Safety Report 9773253 (Version 1)
Quarter: 2013Q4

REPORT INFORMATION
  Report Type: Spontaneous
  Country: JP (occurrence: JP)
  Receive Date: 20131219
  Receipt Date: 20131219
  Transmission Date: 20140711
  Serious: Yes (Other)
  Sender: FDA-Public Use
  Company Number: JP-GLAXOSMITHKLINE-B0932241A

PATIENT
  Sex: Female

DRUGS (4)
  1. HEPSERA 10 [Suspect]
     Indication: HEPATIC CIRRHOSIS
     Dosage: 10MG PER DAY
     Route: 048
     Dates: start: 2005
  2. HEPSERA 10 [Suspect]
     Indication: HEPATIC CIRRHOSIS
     Dosage: 10MG ALTERNATE DAYS
     Route: 048
  3. HEPSERA 10 [Suspect]
     Indication: HEPATIC CIRRHOSIS
     Dosage: 10MG TWO TIMES PER WEEK
     Route: 048
  4. ZEFIX 100 [Suspect]
     Indication: HEPATIC CIRRHOSIS
     Route: 048

REACTIONS (9)
  - Fanconi syndrome [Unknown]
  - Osteomalacia [Unknown]
  - Osteoporosis [Unknown]
  - Back pain [Unknown]
  - Back pain [Unknown]
  - Intervertebral disc protrusion [Unknown]
  - Blood phosphorus decreased [Unknown]
  - Ulna fracture [Unknown]
  - Drug tolerance [Unknown]
